FAERS Safety Report 8378458-5 (Version None)
Quarter: 2012Q2

REPORT INFORMATION
  Report Type: 
  Country: None (occurrence: None)
  Receive Date: 20120522
  Receipt Date: 20120229
  Transmission Date: 20120825
  Serious: No
  Sender: FDA-Public Use
  Company Number: US-ASTRAZENECA-2011SE01416

PATIENT
  Age: 61 Year
  Sex: Male
  Weight: 133.8 kg

DRUGS (15)
  1. PRILOSEC [Suspect]
     Indication: CHOKING
     Route: 048
  2. SEROQUEL [Suspect]
     Route: 048
     Dates: start: 20060101
  3. SEROQUEL [Suspect]
     Route: 048
     Dates: start: 20060101
  4. LISINOPRIL [Concomitant]
     Indication: HYPERTENSION
     Route: 048
  5. LAMICTAL [Concomitant]
     Indication: DEPRESSION
     Route: 048
  6. LANTUS [Concomitant]
     Indication: DIABETES MELLITUS
     Route: 058
  7. METFORMIN HCL [Concomitant]
     Indication: DIABETES MELLITUS
     Route: 048
  8. SEROQUEL [Suspect]
     Indication: DEPRESSION
     Route: 048
  9. SEROQUEL [Suspect]
     Indication: SCHIZOAFFECTIVE DISORDER
     Route: 048
  10. ASPIRIN [Concomitant]
     Route: 048
  11. PRILOSEC [Suspect]
     Indication: DYSPHAGIA
     Route: 048
  12. SEROQUEL [Suspect]
     Route: 048
  13. SEROQUEL [Suspect]
     Route: 048
  14. ACTOS [Concomitant]
     Indication: DIABETES MELLITUS
     Route: 048
  15. PRILOSEC [Suspect]
     Indication: OESOPHAGEAL ACHALASIA
     Route: 048

REACTIONS (5)
  - CHOKING [None]
  - WEIGHT INCREASED [None]
  - DYSPHAGIA [None]
  - OFF LABEL USE [None]
  - OESOPHAGEAL ACHALASIA [None]
